FAERS Safety Report 10716095 (Version 1)
Quarter: 2015Q1

REPORT INFORMATION
  Report Type: Report from Study
  Country: US (occurrence: None)
  Receive Date: 20150109
  Receipt Date: 20150109
  Transmission Date: 20150721
  Serious: Yes (Hospitalization, Other)
  Sender: FDA-Public Use
  Company Number: 2013PROUSA03335

PATIENT
  Age: 70 Year
  Sex: Male
  Weight: 92.1 kg

DRUGS (4)
  1. CALCIUM VITAMIN D (CALCIUM CARBONATE, COLECALCIFEROL) [Concomitant]
  2. PROVENGE [Suspect]
     Active Substance: SIPULEUCEL-T
     Indication: PROSTATE CANCER METASTATIC
     Dosage: SINGLE
     Route: 042
     Dates: start: 20130819, end: 20130819
  3. AMLODIPINE (AMLODIPINE BESILATE) [Concomitant]
  4. XGEVA [Concomitant]
     Active Substance: DENOSUMAB

REACTIONS (1)
  - Cerebral infarction [None]

NARRATIVE: CASE EVENT DATE: 20131111
